FAERS Safety Report 23365534 (Version 4)
Quarter: 2024Q1

REPORT INFORMATION
  Report Type: Spontaneous
  Country: US (occurrence: US)
  Receive Date: 20240104
  Receipt Date: 20240214
  Transmission Date: 20240410
  Serious: No
  Sender: FDA-Public Use
  Company Number: US-PFIZER INC-202300444510

PATIENT
  Age: 11 Year
  Sex: Female

DRUGS (1)
  1. GENOTROPIN [Suspect]
     Active Substance: SOMATROPIN
     Dosage: 1.2MG 6 TIMES PER WEEK

REACTIONS (3)
  - Device leakage [Not Recovered/Not Resolved]
  - Device defective [Not Recovered/Not Resolved]
  - Wrong technique in device usage process [Unknown]
